FAERS Safety Report 21657504 (Version 1)
Quarter: 2022Q4

REPORT INFORMATION
  Report Type: Spontaneous
  Country: JP (occurrence: JP)
  Receive Date: 20221129
  Receipt Date: 20221129
  Transmission Date: 20230112
  Serious: Yes (Other)
  Sender: FDA-Public Use
  Company Number: JP-OTSUKA-2022_052979

PATIENT
  Age: 54 Year
  Sex: Male

DRUGS (9)
  1. BUSULFEX [Suspect]
     Active Substance: BUSULFAN
     Indication: Diffuse large B-cell lymphoma
     Dosage: 3.2 MG/KG
     Route: 065
     Dates: start: 202106
  2. BUSULFEX [Suspect]
     Active Substance: BUSULFAN
     Indication: Autologous haematopoietic stem cell transplant
  3. BUSULFEX [Suspect]
     Active Substance: BUSULFAN
     Indication: Premedication
  4. THIOTEPA [Suspect]
     Active Substance: THIOTEPA
     Indication: Diffuse large B-cell lymphoma
     Dosage: 5 MG/KG
     Route: 065
     Dates: start: 202106
  5. THIOTEPA [Suspect]
     Active Substance: THIOTEPA
     Indication: Autologous haematopoietic stem cell transplant
  6. THIOTEPA [Suspect]
     Active Substance: THIOTEPA
     Indication: Premedication
  7. RITUXIMAB [Suspect]
     Active Substance: RITUXIMAB
     Indication: Diffuse large B-cell lymphoma
     Dosage: UNK
     Route: 065
  8. RITUXIMAB [Suspect]
     Active Substance: RITUXIMAB
     Indication: Autologous haematopoietic stem cell transplant
  9. RITUXIMAB [Suspect]
     Active Substance: RITUXIMAB
     Indication: Premedication

REACTIONS (3)
  - Hypopyon [Recovered/Resolved]
  - Mucosal disorder [Unknown]
  - Platelet count decreased [Recovering/Resolving]
